FAERS Safety Report 10100774 (Version 4)
Quarter: 2014Q2

REPORT INFORMATION
  Report Type: Spontaneous
  Country: GB (occurrence: GB)
  Receive Date: 20140423
  Receipt Date: 20140522
  Transmission Date: 20141212
  Serious: Yes (Life-Threatening, Hospitalization, Other)
  Sender: FDA-Public Use
  Company Number: GB-WATSON-2014-01182

PATIENT
  Age: 48 Year
  Sex: Male

DRUGS (9)
  1. HALOPERIDOL (UNKNOWN) [Suspect]
     Indication: AGITATION
     Dosage: UNK, PRN (5 TO 10 MG MAXIMUM UP TO 30 MG)
     Route: 065
     Dates: start: 20131220
  2. HALOPERIDOL (UNKNOWN) [Suspect]
     Dosage: UNK, PRN (5 TO 10 MG MAXIMUM UP TO 30 MG)
     Route: 048
     Dates: start: 20131220
  3. HALOPERIDOL (UNKNOWN) [Suspect]
     Dosage: UNK
     Route: 065
  4. OLANZAPINE (UNKNOWN) [Suspect]
     Indication: PRODUCT USED FOR UNKNOWN INDICATION
     Dosage: 10 MG, UNKNOWN
     Route: 048
     Dates: start: 20140106, end: 20140106
  5. OLANZAPINE (UNKNOWN) [Suspect]
     Dosage: 10 MG, STAT
     Route: 065
     Dates: start: 20140106, end: 20140106
  6. CLOZARIL [Suspect]
     Indication: SCHIZOAFFECTIVE DISORDER
     Dosage: 200 MG, UNKNOWN
     Route: 048
     Dates: start: 20010701, end: 20140103
  7. CLOZARIL [Suspect]
     Dosage: UNK
     Route: 048
  8. LITHIUM [Concomitant]
     Indication: PRODUCT USED FOR UNKNOWN INDICATION
     Dosage: UNK
     Route: 065
  9. LORAZEPAM [Concomitant]
     Indication: PRODUCT USED FOR UNKNOWN INDICATION
     Dosage: UNK
     Route: 065

REACTIONS (4)
  - Neuroleptic malignant syndrome [Recovered/Resolved]
  - Dysphagia [Recovered/Resolved]
  - Neutrophil count increased [Recovered/Resolved]
  - White blood cell count increased [Recovered/Resolved]
